FAERS Safety Report 7826971-9 (Version None)
Quarter: 2011Q4

REPORT INFORMATION
  Report Type: 
  Country: None (occurrence: None)
  Receive Date: 20111018
  Receipt Date: 20111005
  Transmission Date: 20120403
  Serious: Yes (Death)
  Sender: FDA-Public Use
  Company Number: 1000024580

PATIENT
  Age: 85 Year
  Sex: Female

DRUGS (4)
  1. ANTI-DEMENTIA DRUGS NOS (ANTI-DEMENTIA DRUGS) (ANTI-DEMENTIA) (ANTI-DE [Concomitant]
  2. MEMANTINE HYDROCHLORIDE [Suspect]
     Dosage: 10 MG (10 MG,1 IN 1 D) ; REINTRODUCED 2 TIMES BY STAGES ; REDUCED DOSE
     Dates: start: 20110501, end: 20110101
  3. MEMANTINE HYDROCHLORIDE [Suspect]
     Dosage: 10 MG (10 MG,1 IN 1 D) ; REINTRODUCED 2 TIMES BY STAGES ; REDUCED DOSE
     Dates: start: 20110101, end: 20110101
  4. MEMANTINE HYDROCHLORIDE [Suspect]
     Dosage: 10 MG (10 MG,1 IN 1 D) ; REINTRODUCED 2 TIMES BY STAGES ; REDUCED DOSE
     Dates: start: 20110101

REACTIONS (4)
  - MUSCULOSKELETAL PAIN [None]
  - PULMONARY EMBOLISM [None]
  - AGITATION [None]
  - COUGH [None]
